FAERS Safety Report 12098752 (Version 2)
Quarter: 2016Q1

REPORT INFORMATION
  Report Type: Spontaneous
  Country: US (occurrence: US)
  Receive Date: 20160222
  Receipt Date: 20160302
  Transmission Date: 20160526
  Serious: Yes (Other)
  Sender: FDA-Public Use
  Company Number: US-AMGEN-USASP2016019635

PATIENT
  Age: 52 Year
  Sex: Female
  Weight: 126.35 kg

DRUGS (3)
  1. DOXORUBICIN [Concomitant]
     Active Substance: DOXORUBICIN
     Dosage: 135 MG, Q2WK
     Route: 042
     Dates: start: 20151115, end: 20160114
  2. NEULASTA [Suspect]
     Active Substance: PEGFILGRASTIM
     Indication: PRODUCT USED FOR UNKNOWN INDICATION
     Dosage: 6 MG, Q2WK
     Route: 065
     Dates: start: 20151125, end: 20160114
  3. CYCLOPHOSPHAMIDE. [Concomitant]
     Active Substance: CYCLOPHOSPHAMIDE
     Dosage: 1350 MG, Q2WK
     Route: 042
     Dates: start: 20151125, end: 20160114

REACTIONS (4)
  - Device dislocation [Recovered/Resolved]
  - Feeling cold [Unknown]
  - Feeling hot [Unknown]
  - Hyperhidrosis [Unknown]

NARRATIVE: CASE EVENT DATE: 201512
